FAERS Safety Report 20038351 (Version 1)
Quarter: 2021Q4

REPORT INFORMATION
  Report Type: Spontaneous
  Country: US (occurrence: US)
  Receive Date: 20211105
  Receipt Date: 20211105
  Transmission Date: 20220303
  Serious: No
  Sender: FDA-Public Use
  Company Number: US-EYEVANCE PHARMACEUTICALS-2021EYE00036

PATIENT
  Age: 58 Year
  Sex: Male
  Weight: 83.9 kg

DRUGS (6)
  1. NATACYN [Suspect]
     Active Substance: NATAMYCIN
     Indication: Superficial injury of eye
     Dosage: 1 DROP, EVERY 2 HOURS IN THE RIGHT EYE
     Route: 047
     Dates: start: 20210407
  2. NATACYN [Suspect]
     Active Substance: NATAMYCIN
     Indication: Infection prophylaxis
  3. ^E-VANCOMYCIN^ [Concomitant]
     Dosage: UNK MG
  4. TOBRAMYCIN [Concomitant]
     Active Substance: TOBRAMYCIN
  5. FLUCONAZOLE [Concomitant]
     Active Substance: FLUCONAZOLE
     Route: 048
  6. VALACYCLOVIR [Concomitant]
     Active Substance: VALACYCLOVIR HYDROCHLORIDE
     Route: 048

REACTIONS (4)
  - Foreign body in eye [Not Recovered/Not Resolved]
  - Product deposit [Not Recovered/Not Resolved]
  - Product dose omission issue [Not Recovered/Not Resolved]
  - Off label use [Unknown]

NARRATIVE: CASE EVENT DATE: 20210401
